FAERS Safety Report 16668243 (Version 1)
Quarter: 2019Q3

REPORT INFORMATION
  Report Type: Spontaneous
  Country: US (occurrence: US)
  Receive Date: 20190731
  Receipt Date: 20190731
  Transmission Date: 20191004
  Serious: Yes (Life-Threatening, Other)
  Sender: FDA-Public Use
  Company Number: None

PATIENT
  Age: 37 Year
  Sex: Female
  Weight: 63 kg

DRUGS (2)
  1. TRISODIUM CITRATE DIHYDRATE [Suspect]
     Active Substance: TRISODIUM CITRATE DIHYDRATE
  2. ZOLOFT [Concomitant]
     Active Substance: SERTRALINE HYDROCHLORIDE

REACTIONS (8)
  - Vomiting [None]
  - Tetany [None]
  - Hyperventilation [None]
  - Seizure [None]
  - Hypocalcaemia [None]
  - Infusion site haematoma [None]
  - Hypoaesthesia [None]
  - Loss of consciousness [None]

NARRATIVE: CASE EVENT DATE: 20190708
